FAERS Safety Report 18340007 (Version 2)
Quarter: 2022Q2

REPORT INFORMATION
  Report Type: Spontaneous
  Country: US (occurrence: US)
  Receive Date: 20201002
  Receipt Date: 20220425
  Transmission Date: 20220721
  Serious: Yes (Disabling, Other)
  Sender: FDA-Public Use
  Company Number: US-TEVA-2020-US-1833706

PATIENT
  Sex: Male

DRUGS (17)
  1. TRAMADOL [Suspect]
     Active Substance: TRAMADOL
     Dosage: FORM OF ADMIN: EXTENDED-RELEASE TABLETS
     Route: 065
  2. BUPRENORPHINE TRANSDERMAL SYSTEM [Suspect]
     Active Substance: BUPRENORPHINE
     Route: 062
  3. OXYCODONE HYDROCHLORIDE [Suspect]
     Active Substance: OXYCODONE HYDROCHLORIDE
     Dosage: FORM OF ADMIN: IMMEDIATE-RELEASE TABLETS, OXYCODONE IMMEDIATE-RELEASE TABLETS
     Route: 065
  4. ACETAMINOPHEN\OXYCODONE HYDROCHLORIDE [Suspect]
     Active Substance: ACETAMINOPHEN\OXYCODONE HYDROCHLORIDE
     Route: 065
  5. ACETAMINOPHEN\HYDROCODONE [Suspect]
     Active Substance: ACETAMINOPHEN\HYDROCODONE
     Route: 065
  6. MORPHINE SULFATE [Suspect]
     Active Substance: MORPHINE SULFATE
     Dosage: FORM OF ADMIN: EXTENDED-RELEASE TABLETS, MORPHINE EXTENDED-RELEASE TABLETS
     Route: 065
  7. FENTANYL [Suspect]
     Active Substance: FENTANYL
     Indication: Product used for unknown indication
     Route: 065
  8. OXYCONTIN [Suspect]
     Active Substance: OXYCODONE HYDROCHLORIDE
     Route: 065
  9. DILAUDID [Suspect]
     Active Substance: HYDROMORPHONE HYDROCHLORIDE
     Route: 065
  10. MS CONTIN [Suspect]
     Active Substance: MORPHINE SULFATE
     Route: 065
  11. OXYCODONE [Suspect]
     Active Substance: OXYCODONE
     Dosage: FORM OF ADMIN: EXTENDED-RELEASE TABLETS, OXYCODONE EXTENDED-RELEASE TABLETS
     Route: 065
  12. HYDROMORPHONE [Suspect]
     Active Substance: HYDROMORPHONE
     Dosage: FORM OF ADMIN: IMMEDIATE-RELEASE TABLETS
     Route: 065
  13. NORCO [Suspect]
     Active Substance: ACETAMINOPHEN\HYDROCODONE BITARTRATE
     Route: 065
  14. ROXICODONE [Suspect]
     Active Substance: OXYCODONE HYDROCHLORIDE
     Route: 065
  15. HEROIN [Suspect]
     Active Substance: DIAMORPHINE
     Route: 065
  16. PERCOCET [Suspect]
     Active Substance: ACETAMINOPHEN\OXYCODONE HYDROCHLORIDE
     Route: 065
  17. SUBOXONE [Suspect]
     Active Substance: BUPRENORPHINE HYDROCHLORIDE\NALOXONE HYDROCHLORIDE
     Route: 065

REACTIONS (12)
  - Overdose [Unknown]
  - Dependence [Unknown]
  - Substance use disorder [Unknown]
  - Disability [Unknown]
  - Economic problem [Unknown]
  - Anxiety [Unknown]
  - Panic attack [Unknown]
  - Depression [Unknown]
  - Agoraphobia [Unknown]
  - Hypertension [Unknown]
  - Impaired work ability [Unknown]
  - Mental disorder [Unknown]
